FAERS Safety Report 9379103 (Version 3)
Quarter: 2013Q3

REPORT INFORMATION
  Report Type: Spontaneous
  Country: FR (occurrence: FR)
  Receive Date: 20130702
  Receipt Date: 20130723
  Transmission Date: 20140515
  Serious: Yes (Hospitalization, Other)
  Sender: FDA-Public Use
  Company Number: PHHY2013FR067400

PATIENT
  Age: 61 Year
  Sex: Female

DRUGS (2)
  1. TAREG [Suspect]
     Indication: LABILE HYPERTENSION
     Dosage: 1 DF (40 MG), QD
     Route: 048
     Dates: start: 20101216
  2. MAXIFLOR [Suspect]
     Indication: IRRITABLE BOWEL SYNDROME
     Dosage: 1 DF, TID
     Route: 048
     Dates: end: 20130518

REACTIONS (19)
  - Toxic skin eruption [Recovered/Resolved]
  - Eczema [Recovering/Resolving]
  - Pruritus [Unknown]
  - Rash vesicular [Unknown]
  - Skin lesion [Unknown]
  - Rash pustular [Unknown]
  - Skin exfoliation [Unknown]
  - Erythema [Unknown]
  - Pemphigus [Unknown]
  - Dermatitis exfoliative [Unknown]
  - Rash [Unknown]
  - Skin reaction [Not Recovered/Not Resolved]
  - Oedema [Unknown]
  - Eosinophil count decreased [Unknown]
  - Renal failure [Unknown]
  - Blood creatinine increased [Recovered/Resolved]
  - Creatinine renal clearance decreased [Unknown]
  - White blood cell count increased [Recovered/Resolved]
  - Chills [Unknown]
